FAERS Safety Report 17872302 (Version 1)
Quarter: 2020Q2

REPORT INFORMATION
  Report Type: Spontaneous
  Country: CN (occurrence: CN)
  Receive Date: 20200608
  Receipt Date: 20200608
  Transmission Date: 20200714
  Serious: Yes (Other)
  Sender: FDA-Public Use
  Company Number: CN-FRESENIUS KABI-FK202005560

PATIENT
  Age: 58 Year
  Sex: Female
  Weight: 48 kg

DRUGS (3)
  1. NOVAMIN 8.5% [Suspect]
     Active Substance: AMINO ACIDS, SOURCE UNSPECIFIED
     Indication: NUTRITIONAL SUPPLEMENTATION
     Dosage: 250ML, QD
     Route: 041
     Dates: start: 20200527, end: 20200527
  2. GLYCEROL/PHOSPHOLIPIDS EGG/MEDIUM-CHAIN TRIGLYCERIDES/GLYCINE MAX SEED OIL [Suspect]
     Active Substance: EGG PHOSPHOLIPIDS\GLYCERIN\MEDIUM-CHAIN TRIGLYCERIDES\SOYBEAN OIL
     Indication: NUTRITIONAL SUPPLEMENTATION
     Dosage: 250ML, QD
     Route: 041
     Dates: start: 20200527, end: 20200527
  3. OMEGAVEN [Suspect]
     Active Substance: FISH OIL
     Indication: NUTRITIONAL SUPPLEMENTATION
     Dosage: 100ML, QD
     Route: 041
     Dates: start: 20200527, end: 20200527

REACTIONS (2)
  - Back pain [Recovered/Resolved]
  - Pyrexia [Recovered/Resolved]

NARRATIVE: CASE EVENT DATE: 20200527
